FAERS Safety Report 6468484-5 (Version None)
Quarter: 2009Q4

REPORT INFORMATION
  Report Type: 
  Country: None (occurrence: None)
  Receive Date: 20091202
  Receipt Date: 20091202
  Transmission Date: 20100525
  Serious: Yes (Hospitalization, Disabling, Other)
  Sender: FDA-Public Use
  Company Number: None

PATIENT
  Sex: Female
  Weight: 90.7194 kg

DRUGS (1)
  1. ACTONEL [Suspect]
     Dosage: WEEKLY  TOOK 12 PILLS
     Dates: start: 20090701, end: 20091001

REACTIONS (9)
  - ARTHRALGIA [None]
  - DECREASED APPETITE [None]
  - DYSGEUSIA [None]
  - GAIT DISTURBANCE [None]
  - MOVEMENT DISORDER [None]
  - MUSCULOSKELETAL PAIN [None]
  - NIGHTMARE [None]
  - OEDEMA PERIPHERAL [None]
  - PAIN IN EXTREMITY [None]
